FAERS Safety Report 16206107 (Version 1)
Quarter: 2019Q2

REPORT INFORMATION
  Report Type: Spontaneous
  Country: US (occurrence: US)
  Receive Date: 20190417
  Receipt Date: 20190417
  Transmission Date: 20190711
  Serious: No
  Sender: FDA-Public Use
  Company Number: US-LUPIN PHARMACEUTICALS INC.-2019-01707

PATIENT
  Age: 81 Year
  Sex: Female
  Weight: 62.13 kg

DRUGS (1)
  1. MOXIFLOXACIN HYDROCHLORIDE OPHTHALMIC SOLUTION USP, 0.5% [Suspect]
     Active Substance: MOXIFLOXACIN HYDROCHLORIDE
     Indication: PREMEDICATION
     Dosage: 5 MILLILITER, TID
     Route: 047
     Dates: start: 20190311, end: 20190311

REACTIONS (5)
  - Chest discomfort [Recovered/Resolved]
  - Heart rate increased [Recovered/Resolved]
  - Eye pain [Recovered/Resolved]
  - Throat irritation [Recovered/Resolved]
  - Ocular hyperaemia [Recovered/Resolved]

NARRATIVE: CASE EVENT DATE: 20190311
